FAERS Safety Report 4952157-1 (Version None)
Quarter: 2006Q1

REPORT INFORMATION
  Report Type: 
  Country: None (occurrence: None)
  Receive Date: 20060320
  Receipt Date: 20060302
  Transmission Date: 20060701
  Serious: Yes (Other)
  Sender: FDA-Public Use
  Company Number: DSA_27896_2006

PATIENT
  Age: 61 Year
  Sex: Female

DRUGS (3)
  1. ENALAPRILAT INJECTION [Suspect]
     Dosage: DF
  2. TAUREDON [Suspect]
     Dosage: 50 MG
     Dates: start: 19980101
  3. HYDROCHLOROTHIAZIDE [Concomitant]

REACTIONS (6)
  - DIZZINESS [None]
  - ERYTHEMA [None]
  - HYPERHIDROSIS [None]
  - HYPOTENSION [None]
  - NAUSEA [None]
  - TACHYCARDIA [None]
